FAERS Safety Report 5825492-2 (Version None)
Quarter: 2008Q3

REPORT INFORMATION
  Report Type: 
  Country: None (occurrence: None)
  Receive Date: 20080725
  Receipt Date: 20080725
  Transmission Date: 20090109
  Serious: Yes (Other)
  Sender: FDA-Public Use
  Company Number: None

PATIENT
  Sex: Female
  Weight: 127.0072 kg

DRUGS (3)
  1. SARAPIN [Suspect]
     Indication: BACK PAIN
     Dosage: X1 IM ONE SINGLE DOSE
     Route: 030
     Dates: start: 20080707, end: 20080707
  2. WARFARIN SODIUM [Suspect]
     Indication: INJURY
     Dosage: 11.5MG QD PO
     Route: 048
     Dates: start: 20070301, end: 20080724
  3. WARFARIN SODIUM [Suspect]
     Indication: THROMBOSIS
     Dosage: 11.5MG QD PO
     Route: 048
     Dates: start: 20070301, end: 20080724

REACTIONS (6)
  - ABNORMAL CLOTTING FACTOR [None]
  - BONE PAIN [None]
  - DRUG INTERACTION [None]
  - DRUG TOXICITY [None]
  - INTERNATIONAL NORMALISED RATIO INCREASED [None]
  - NEURALGIA [None]
